FAERS Safety Report 4287032-1 (Version None)
Quarter: 2004Q1

REPORT INFORMATION
  Report Type: 
  Country: None (occurrence: None)
  Receive Date: 20040204
  Receipt Date: 20040126
  Transmission Date: 20041129
  Serious: Yes (Hospitalization, Other)
  Sender: FDA-Public Use
  Company Number: 2003-07-3467

PATIENT
  Age: 54 Year
  Sex: Female
  Weight: 59 kg

DRUGS (5)
  1. RIBAVIRIN [Suspect]
     Indication: SEVERE ACUTE RESPIRATORY SYNDROME
     Dosage: 1200MG BID-QD ORAL
     Route: 048
     Dates: start: 20030421, end: 20030428
  2. VIRAZOLE [Suspect]
     Indication: SEVERE ACUTE RESPIRATORY SYNDROME
     Dosage: 2G-400 MG*Q8H INTRAVENOUS
     Route: 042
     Dates: start: 20040421, end: 20030421
  3. LEVOFLOXACIN [Suspect]
     Indication: SEVERE ACUTE RESPIRATORY SYNDROME
     Dosage: 500 MG QD INTRAVENOUS
     Route: 042
     Dates: start: 20030421, end: 20030401
  4. LEVOFLOXACIN [Suspect]
     Indication: SEVERE ACUTE RESPIRATORY SYNDROME
     Dosage: 500 MG QD ORAL
     Route: 048
     Dates: start: 20030401, end: 20030428
  5. PREDNISONE [Concomitant]

REACTIONS (3)
  - ALANINE AMINOTRANSFERASE INCREASED [None]
  - ASPARTATE AMINOTRANSFERASE INCREASED [None]
  - HYPOCALCAEMIA [None]
